FAERS Safety Report 22014541 (Version 1)
Quarter: 2023Q1

REPORT INFORMATION
  Report Type: Spontaneous
  Country: ZA (occurrence: ZA)
  Receive Date: 20230221
  Receipt Date: 20230221
  Transmission Date: 20230417
  Serious: Yes (Other)
  Sender: FDA-Public Use
  Company Number: ZA-DRL-SPO/SAF/23/0161176

PATIENT
  Age: 50 Year
  Sex: Male

DRUGS (1)
  1. QUETIAPINE [Suspect]
     Active Substance: QUETIAPINE
     Indication: Product used for unknown indication

REACTIONS (2)
  - Urinary tract disorder [Unknown]
  - Urethral obstruction [Unknown]
